FAERS Safety Report 7553728-9 (Version None)
Quarter: 2011Q2

REPORT INFORMATION
  Report Type: 
  Country: None (occurrence: None)
  Receive Date: 20110614
  Receipt Date: 20110614
  Transmission Date: 20111010
  Serious: Yes (Other)
  Sender: FDA-Public Use
  Company Number: None

PATIENT
  Age: 68 Year
  Sex: Male
  Weight: 77.5651 kg

DRUGS (1)
  1. CRESTOR [Suspect]
     Indication: BLOOD CHOLESTEROL INCREASED
     Dosage: 20MG QD 2 MONTHS 28 DAYS
     Dates: start: 20110216, end: 20110512

REACTIONS (2)
  - INTERVERTEBRAL DISC DISORDER [None]
  - MYOPATHY [None]
